FAERS Safety Report 5275752-1 (Version None)
Quarter: 2007Q1

REPORT INFORMATION
  Report Type: 
  Country: None (occurrence: None)
  Receive Date: 20070326
  Receipt Date: 20070321
  Transmission Date: 20070707
  Serious: Yes (Hospitalization)
  Sender: FDA-Public Use
  Company Number: US-GLAXOSMITHKLINE-A0644082A

PATIENT
  Age: 50 Year
  Sex: Female

DRUGS (4)
  1. ADVAIR DISKUS 100/50 [Suspect]
     Indication: DRUG USE FOR UNKNOWN INDICATION
     Dosage: 1PUFF TWICE PER DAY
     Route: 055
     Dates: start: 20070302, end: 20070303
  2. LOTENSIN [Concomitant]
  3. PREDNISONE [Concomitant]
  4. ANTIBIOTIC [Concomitant]

REACTIONS (6)
  - DYSPNOEA [None]
  - EYE PAIN [None]
  - HEADACHE [None]
  - HEART RATE INCREASED [None]
  - THROAT TIGHTNESS [None]
  - TREMOR [None]
